FAERS Safety Report 7624465-7 (Version None)
Quarter: 2011Q3

REPORT INFORMATION
  Report Type: 
  Country: None (occurrence: None)
  Receive Date: 20110720
  Receipt Date: 20110707
  Transmission Date: 20111222
  Serious: Yes (Hospitalization)
  Sender: FDA-Public Use
  Company Number: JP-BRISTOL-MYERS SQUIBB COMPANY-15822083

PATIENT
  Age: 38 Year
  Sex: Female

DRUGS (13)
  1. PREDNISOLONE [Concomitant]
     Indication: RHEUMATOID ARTHRITIS
     Dosage: 20MG/D;UNK-1NOV10 18MG/D;2NOV-16NOV10 16MG/D;17NOV10-31JAN11 15MG/D;1FEB-17MAR11 14MG/D;18MAR11
  2. MAGMITT [Concomitant]
  3. PRIMPERAN TAB [Concomitant]
  4. ORENCIA [Suspect]
     Indication: RHEUMATOID ARTHRITIS
     Dosage: ALSO TAKEN ON 2NOV,17NOV, 28DEC2010 AND 1FEB,3MAR,31MAR2011
     Route: 042
     Dates: start: 20101019
  5. RABEPRAZOLE SODIUM [Concomitant]
     Indication: PROPHYLAXIS
  6. NAUZELIN [Concomitant]
  7. ALLEGRA [Concomitant]
  8. LOXOPROFEN SODIUM [Concomitant]
  9. ALFAROL [Concomitant]
  10. SULFAMETHOXAZOLE [Concomitant]
     Indication: PROPHYLAXIS
  11. ZOLPIDEM [Concomitant]
  12. METHOTREXATE [Suspect]
     Indication: RHEUMATOID ARTHRITIS
     Dosage: 12MG/WEEK(UNK-24DEC2010) 8MG/WEEK(25DEC2010-ONGOING)
  13. ZANTAC [Concomitant]

REACTIONS (2)
  - NAUSEA [None]
  - VOMITING [None]
